FAERS Safety Report 24077451 (Version 1)
Quarter: 2024Q3

REPORT INFORMATION
  Report Type: Spontaneous
  Country: SG (occurrence: SG)
  Receive Date: 20240711
  Receipt Date: 20240711
  Transmission Date: 20241017
  Serious: Yes (Hospitalization, Other)
  Sender: SINOTHERAPEUTICS
  Company Number: SG-SNT-000401

PATIENT
  Age: 73 Year
  Sex: Male

DRUGS (2)
  1. POSACONAZOLE [Suspect]
     Active Substance: POSACONAZOLE
     Indication: Product use in unapproved indication
     Dosage: HE COMPLETED 36 DAYS OF POSACONAZOLE AS AN INPATIENT.
     Route: 048
  2. AMPHOTERICIN B [Suspect]
     Active Substance: AMPHOTERICIN B
     Indication: Cutaneous mucormycosis
     Route: 042

REACTIONS (3)
  - Acute kidney injury [Recovering/Resolving]
  - Hypokalaemia [Recovering/Resolving]
  - Drug effective for unapproved indication [Unknown]
